FAERS Safety Report 17678284 (Version 1)
Quarter: 2020Q2

REPORT INFORMATION
  Report Type: Spontaneous
  Country: US (occurrence: US)
  Receive Date: 20200417
  Receipt Date: 20200417
  Transmission Date: 20200714
  Serious: No
  Sender: FDA-Public Use
  Company Number: US-LUPIN PHARMACEUTICALS INC.-2019-07906

PATIENT
  Age: 68 Year
  Sex: Male
  Weight: 97 kg

DRUGS (3)
  1. RIFAMPIN CAPSULES USP, 300 MG [Suspect]
     Active Substance: RIFAMPIN
     Indication: BACTERIAL INFECTION
     Dosage: 300 MILLIGRAM, BID
     Route: 048
     Dates: start: 201908
  2. ETHAMBUTOL [Suspect]
     Active Substance: ETHAMBUTOL HYDROCHLORIDE
     Indication: BACTERIAL INFECTION
     Dosage: 400 MILLIGRAM, TID
     Route: 048
     Dates: start: 201908
  3. CLARITHROMYCIN. [Suspect]
     Active Substance: CLARITHROMYCIN
     Indication: BACTERIAL INFECTION
     Dosage: 500 MILLIGRAM, BID
     Route: 048
     Dates: start: 201908

REACTIONS (2)
  - Abdominal discomfort [Not Recovered/Not Resolved]
  - Vomiting [Not Recovered/Not Resolved]

NARRATIVE: CASE EVENT DATE: 201908
